FAERS Safety Report 8177514-4 (Version None)
Quarter: 2012Q1

REPORT INFORMATION
  Report Type: 
  Country: None (occurrence: None)
  Receive Date: 20120301
  Receipt Date: 20120221
  Transmission Date: 20120608
  Serious: Yes (Other)
  Sender: FDA-Public Use
  Company Number: FR-ACTELION-A-CH2012-61581

PATIENT
  Age: 73 Year
  Sex: Female

DRUGS (10)
  1. FLUINDIONE [Concomitant]
  2. VENTAVIS [Suspect]
     Dosage: 5 ?G, UNK
     Route: 055
  3. VENTAVIS [Suspect]
     Indication: PULMONARY ARTERIAL HYPERTENSION
     Dosage: 5 ?G, UNK
     Route: 055
  4. CALCIUM [Concomitant]
  5. SILDENAFIL [Concomitant]
  6. FUROSEMIDE [Concomitant]
  7. CHOLECALCIFEROL [Concomitant]
  8. ALENDRONATE SODIUM [Concomitant]
  9. SITAXENTAN [Concomitant]
  10. BROMAZEPAN [Concomitant]

REACTIONS (4)
  - HAEMANGIOMA [None]
  - CONCOMITANT DISEASE AGGRAVATED [None]
  - FLATULENCE [None]
  - MELAENA [None]
